FAERS Safety Report 24991188 (Version 3)
Quarter: 2025Q1

REPORT INFORMATION
  Report Type: Spontaneous
  Country: US (occurrence: US)
  Receive Date: 20250220
  Receipt Date: 20250313
  Transmission Date: 20250409
  Serious: Yes (Other)
  Sender: PFIZER
  Company Number: US-PFIZER INC-202500033797

PATIENT
  Age: 60 Year
  Sex: Female

DRUGS (7)
  1. TUKYSA [Suspect]
     Active Substance: TUCATINIB
     Indication: Metastases to meninges
     Dosage: 2 TABS ORAL EVERY 12 HOURS
     Route: 048
  2. TUKYSA [Suspect]
     Active Substance: TUCATINIB
     Indication: HER2 positive breast cancer
     Dosage: TAKE TWO 150MG TABLETS BY MOUTH TWICE DAILY
     Route: 048
     Dates: start: 202412
  3. TUKYSA [Suspect]
     Active Substance: TUCATINIB
     Indication: Metastases to central nervous system
  4. HERCEPTIN [Suspect]
     Active Substance: TRASTUZUMAB
     Dosage: UNK, EVERY 3 WEEKS
     Route: 042
     Dates: start: 202412
  5. XELODA [Suspect]
     Active Substance: CAPECITABINE
  6. LOPERAMIDE HYDROCHLORIDE [Concomitant]
     Active Substance: LOPERAMIDE HYDROCHLORIDE
  7. IMODIUM [Concomitant]
     Active Substance: LOPERAMIDE HYDROCHLORIDE

REACTIONS (3)
  - Diarrhoea [Unknown]
  - Off label use [Unknown]
  - Product use issue [Unknown]
